FAERS Safety Report 25509438 (Version 1)
Quarter: 2025Q3

REPORT INFORMATION
  Report Type: Spontaneous
  Country: US (occurrence: US)
  Receive Date: 20250703
  Receipt Date: 20250703
  Transmission Date: 20251020
  Serious: No
  Sender: BAYER HEALTHCARE LLC
  Company Number: US-BAYER-2025A087832

PATIENT
  Age: 87 Year
  Sex: Female

DRUGS (1)
  1. CLARITIN [Suspect]
     Active Substance: LORATADINE
     Indication: Cold urticaria
     Dosage: 1 DF, QD
     Route: 048

REACTIONS (2)
  - Product package associated injury [Recovering/Resolving]
  - Product packaging issue [None]

NARRATIVE: CASE EVENT DATE: 20250702
